FAERS Safety Report 8305781-2 (Version None)
Quarter: 2012Q2

REPORT INFORMATION
  Report Type: 
  Country: None (occurrence: None)
  Receive Date: 20120423
  Receipt Date: 20120418
  Transmission Date: 20120825
  Serious: No
  Sender: FDA-Public Use
  Company Number: US-PFIZER INC-2012096561

PATIENT
  Sex: Female
  Weight: 62.5 kg

DRUGS (12)
  1. HUMIRA [Concomitant]
     Dosage: 40 MG
  2. ADVAIR DISKUS 100/50 [Concomitant]
     Dosage: 2X/DAY
  3. SYNTHROID [Concomitant]
     Dosage: 0.05 MG, 1X/DAY
  4. POTASSIUM [Concomitant]
     Dosage: UNK
  5. MAXALT [Concomitant]
     Dosage: 10 MG, AS NEEDED
  6. LIPITOR [Suspect]
     Indication: BLOOD CHOLESTEROL INCREASED
     Dosage: 20 MG, 1X/DAY
     Route: 048
     Dates: start: 20120101, end: 20120401
  7. TRILIPIX [Concomitant]
     Dosage: UNK
  8. CORGARD [Concomitant]
     Dosage: 20 MG, 1X/DAY
  9. BACLOFEN [Concomitant]
     Dosage: UNK
  10. LASIX [Concomitant]
     Dosage: 40 MG, 1X/DAY
  11. MESALAMINE [Concomitant]
     Dosage: 0.650 MG (TWO TABLETS OF 0.325MG), 1X/DAY
  12. LYRICA [Suspect]
     Indication: NEURALGIA
     Dosage: 75 MG, 2X/DAY
     Dates: start: 20120401

REACTIONS (4)
  - MUSCULAR WEAKNESS [None]
  - MUSCLE DISORDER [None]
  - OEDEMA PERIPHERAL [None]
  - MYALGIA [None]
